FAERS Safety Report 5485163-1 (Version None)
Quarter: 2007Q4

REPORT INFORMATION
  Report Type: 
  Country: None (occurrence: None)
  Receive Date: 20071015
  Receipt Date: 20071009
  Transmission Date: 20080405
  Serious: Yes (Hospitalization, Other)
  Sender: FDA-Public Use
  Company Number: PHNU2007DE03381

PATIENT
  Sex: Female
  Weight: 81 kg

DRUGS (4)
  1. FEMARA [Suspect]
     Indication: BREAST CANCER
     Dosage: 2.5 MG, QD
     Route: 048
  2. METFORMIN [Concomitant]
     Indication: DIABETES MELLITUS
  3. METOPROLOL [Concomitant]
     Indication: HYPERTENSION
  4. ENAHEXAL [Concomitant]
     Indication: HYPERTENSION

REACTIONS (3)
  - FALL [None]
  - FEMORAL NECK FRACTURE [None]
  - RADIUS FRACTURE [None]
